FAERS Safety Report 5617387-4 (Version None)
Quarter: 2008Q1

REPORT INFORMATION
  Report Type: 
  Country: None (occurrence: None)
  Receive Date: 20080207
  Receipt Date: 20070802
  Transmission Date: 20080703
  Serious: No
  Sender: FDA-Public Use
  Company Number: A0667871A

PATIENT
  Age: 85 Year
  Sex: Male

DRUGS (13)
  1. PAXIL [Suspect]
     Indication: DEPRESSION
     Dosage: 40MG PER DAY
     Route: 048
     Dates: start: 20070101
  2. PAROXETINE [Suspect]
     Indication: DEPRESSION
     Dosage: 40MG PER DAY
     Route: 048
     Dates: start: 20070101
  3. COZAAR [Concomitant]
  4. AGGRENOX [Concomitant]
  5. PROCARDIA [Concomitant]
  6. BETAPACE [Concomitant]
  7. LISINOPRIL [Concomitant]
  8. LASIX [Concomitant]
  9. PRILOSEC [Concomitant]
  10. MULTI-VITAMIN [Concomitant]
  11. UNKNOWN MEDICATION [Concomitant]
  12. OXYCONTIN [Concomitant]
  13. FENTANYL [Concomitant]
     Route: 062

REACTIONS (1)
  - SOMNOLENCE [None]
